FAERS Safety Report 26112861 (Version 1)
Quarter: 2025Q4

REPORT INFORMATION
  Report Type: Report from Study
  Country: BR (occurrence: US)
  Receive Date: 20251202
  Receipt Date: 20251202
  Transmission Date: 20260117
  Serious: Yes (Other)
  Sender: EMD SERONO INC
  Company Number: BR-Merck Healthcare KGaA-2025060544

PATIENT
  Age: 40 Year
  Sex: Male

DRUGS (4)
  1. MAVENCLAD [Suspect]
     Active Substance: CLADRIBINE
     Indication: Multiple sclerosis
     Dosage: YEAR 1 MONTH 2 THERAPY 2 TABLETS ON DAYS 1 TO 2 AND 1 TABLET ON DAYS 3 TO 5
     Dates: start: 20210625, end: 20210629
  2. MAVENCLAD [Suspect]
     Active Substance: CLADRIBINE
     Dosage: YEAR 2 MONTH 1 THERAPY 2 TABLETS ON DAYS 1 TO 2 AND 1 TABLET ON DAYS 3 TO 5
     Dates: start: 20220525, end: 20220529
  3. MAVENCLAD [Suspect]
     Active Substance: CLADRIBINE
     Dosage: YEAR 2 MONTH 2 THERAPY 2 TABLETS ON DAYS 1 TO 2 AND 1 TABLET ON DAYS 3 TO 5
     Dates: start: 20220711, end: 20220715
  4. MAVENCLAD [Suspect]
     Active Substance: CLADRIBINE
     Dosage: YEAR 1 MONTH 1 THERAPY 2 TABLETS ON DAYS 1 TO 2 AND 1 TABLET ON DAYS 3 TO 5
     Dates: start: 20210525, end: 20210529

REACTIONS (1)
  - Nasal polyps [Recovered/Resolved]

NARRATIVE: CASE EVENT DATE: 20250901
